FAERS Safety Report 8248407-9 (Version None)
Quarter: 2012Q1

REPORT INFORMATION
  Report Type: 
  Country: None (occurrence: None)
  Receive Date: 20120330
  Receipt Date: 20120315
  Transmission Date: 20120608
  Serious: Yes (Hospitalization, Other)
  Sender: FDA-Public Use
  Company Number: PHHY2008US04226

PATIENT
  Sex: Female
  Weight: 82 kg

DRUGS (38)
  1. LISINOPRIL [Concomitant]
     Indication: HYPERTENSION
     Dosage: 40 MG, QD
     Dates: start: 20001222, end: 20080204
  2. ACETOXYCODONE [Concomitant]
     Dosage: UNK UKN, UNK
  3. CARDIZEM CD [Concomitant]
     Dosage: 180 MG, DAILY
     Route: 048
  4. MYCOPHENOLATE MOFETIL [Concomitant]
     Dosage: UNK UKN, UNK
  5. BACTRIM [Concomitant]
     Indication: PROPHYLAXIS
     Dosage: 1 DF, QD
     Route: 048
     Dates: start: 20080206, end: 20080229
  6. ROCALTROL [Concomitant]
     Indication: MINERAL SUPPLEMENTATION
     Dosage: 0.5 UG, QD
     Dates: start: 20080214
  7. OXYCONTIN [Concomitant]
     Dosage: 20 MG, BID
  8. DILAUDID [Concomitant]
     Dosage: UNK UKN, UNK
  9. SIROLIMUS [Concomitant]
     Dosage: 2 MG, UNK
     Dates: start: 20080507
  10. PROGRAF [Concomitant]
     Indication: IMMUNOSUPPRESSION
     Dosage: 6 MG, BID
     Dates: start: 20080229
  11. COZAAR [Concomitant]
     Dosage: 50 MG, QD
  12. SIROLIMUS [Concomitant]
     Indication: IMMUNOSUPPRESSION
     Dosage: 1 MG, QD
     Route: 048
  13. NYSTATIN [Concomitant]
     Dosage: 1 ML, TID
     Dates: start: 20080206
  14. LANTUS [Concomitant]
     Indication: BLOOD GLUCOSE ABNORMAL
     Dosage: 15 U, NS
     Dates: start: 20080229
  15. CALCITRIOL [Concomitant]
     Dosage: 1CAP ONCE A DAY
  16. VITAMIN D [Concomitant]
     Dosage: UNK UKN, UNK
  17. GLYBURIDE [Concomitant]
     Dosage: 2.5 MG
  18. MULTI-VITAMINS [Concomitant]
     Dosage: UNK UKN, UNK
  19. PROPRANOLOL [Concomitant]
     Indication: BLOOD PRESSURE
     Dosage: 10 MG, UNK
     Route: 048
  20. LASIX [Concomitant]
     Dosage: 20 MG, UNK
     Route: 048
  21. MYFORTIC [Suspect]
     Indication: RENAL TRANSPLANT
     Dosage: 540 MG, BID
     Route: 048
     Dates: start: 20080206, end: 20080229
  22. MYFORTIC [Suspect]
     Indication: IMMUNOSUPPRESSION
     Dosage: 720 MG, BID
     Route: 048
     Dates: start: 20080515
  23. NIFEDIPINE [Concomitant]
     Indication: HYPERTENSION
     Dosage: UNK UKN, UNK
     Dates: start: 20001222, end: 20080204
  24. BACTRIM [Concomitant]
     Dosage: I TABLET, QD
     Dates: start: 20080229
  25. CALAN [Concomitant]
     Indication: HYPERTENSION
     Dosage: 240 MG, QD
     Dates: start: 20080314
  26. PREDNISONE TAB [Concomitant]
     Indication: IMMUNOSUPPRESSION
     Dosage: 5 MG, QD
     Dates: start: 20080314
  27. PREDNISONE TAB [Concomitant]
     Dosage: 5 MG, UNK
     Dates: start: 20080422
  28. ROSUVASTATIN [Concomitant]
     Dosage: 5MG 3XWEEKS
  29. ELAVIL [Concomitant]
     Indication: DEPRESSION
     Dosage: 25 MG, QD
     Dates: start: 20060413
  30. VALCYTE [Concomitant]
     Dosage: 450 MG, QOD
     Dates: start: 20080206
  31. PEPCID [Concomitant]
     Indication: ACIDOSIS
     Dosage: 20 MG, QD
     Dates: start: 20080214
  32. STRESSTABS [Concomitant]
     Indication: VITAMIN SUPPLEMENTATION
     Dosage: UNK UKN, UNK
     Dates: start: 20080206
  33. ACETAMINOPHEN [Concomitant]
     Dosage: UNK UKN, UNK
  34. OXYCODONE HCL [Concomitant]
     Dosage: UNK UKN, UNK
  35. PERCOCET [Concomitant]
     Dosage: 1-2 TABS WAS USED EVERY FOUR HOURS
  36. CARDIZEM CD [Concomitant]
     Indication: BLOOD PRESSURE
     Dosage: 300 MG, QD
  37. HYDRALAZINE HCL [Concomitant]
     Indication: HYPERTENSION
     Dosage: 25 MG, QD
     Dates: start: 20080122, end: 20080204
  38. ASPIRIN [Concomitant]
     Indication: CARDIAC DISORDER
     Dosage: 81 MG, QD
     Dates: start: 20080208

REACTIONS (24)
  - SEROMA [None]
  - PURULENT DISCHARGE [None]
  - URINARY TRACT INFECTION [None]
  - PYREXIA [None]
  - DEHYDRATION [None]
  - NEURALGIA [None]
  - NAUSEA [None]
  - KIDNEY TRANSPLANT REJECTION [None]
  - PAIN IN EXTREMITY [None]
  - WOUND [None]
  - PAIN [None]
  - MOBILITY DECREASED [None]
  - DECREASED APPETITE [None]
  - DYSURIA [None]
  - FLUID RETENTION [None]
  - BLOOD CREATININE INCREASED [None]
  - WOUND DEHISCENCE [None]
  - CHILLS [None]
  - ASTHENIA [None]
  - BIOPSY KIDNEY ABNORMAL [None]
  - TENDERNESS [None]
  - CYSTITIS [None]
  - ABDOMINAL HERNIA [None]
  - VOMITING [None]
